FAERS Safety Report 9358811 (Version 2)
Quarter: 2013Q4

REPORT INFORMATION
  Report Type: Spontaneous
  Country: US (occurrence: US)
  Receive Date: 20130620
  Receipt Date: 20131216
  Transmission Date: 20140711
  Serious: Yes (Hospitalization)
  Sender: FDA-Public Use
  Company Number: US-B.I. PHARMACEUTICALS,INC./RIDGEFIELD-2013-BI-17216BP

PATIENT
  Age: 65 Year
  Sex: Female
  Weight: 134.26 kg

DRUGS (19)
  1. PRADAXA [Suspect]
     Indication: ANTICOAGULANT THERAPY
     Dosage: 300 MG
     Dates: start: 20120604, end: 20120626
  2. PRADAXA [Suspect]
     Indication: ATRIAL FIBRILLATION
  3. LANTUS [Concomitant]
     Indication: TYPE 2 DIABETES MELLITUS
  4. METOLAZONE [Concomitant]
     Dosage: 2.5 MG
     Route: 048
  5. TRICOR [Concomitant]
     Dosage: 145 MG
     Route: 048
  6. NOVOLIN [Concomitant]
     Indication: TYPE 2 DIABETES MELLITUS
  7. HYDRALAZINE [Concomitant]
     Dosage: 75 MG
     Route: 048
  8. DICYCLOMINE [Concomitant]
     Dosage: 40 MG
     Route: 048
  9. LASIX [Concomitant]
     Dosage: 20 MG
     Route: 048
  10. FOLIC ACID [Concomitant]
     Dosage: 1 MG
     Route: 048
  11. PENTOXIFYLLINE [Concomitant]
     Dosage: 1200 MG
     Route: 048
  12. DIGOXIN [Concomitant]
  13. METFORMIN [Concomitant]
     Dosage: 1000 MG
     Route: 048
  14. LYRICA [Concomitant]
     Dosage: 75 MG
     Route: 048
  15. ASACOL [Concomitant]
     Dosage: 400 MG
     Route: 048
  16. SYNTHROID [Concomitant]
     Dosage: 75 MCG
     Route: 048
  17. PROTONIX [Concomitant]
     Dosage: 40 MG
     Route: 048
  18. POTASSIUM CHLORIDE [Concomitant]
     Dosage: 10 MEQ
     Route: 048
  19. ZETIA [Concomitant]
     Dosage: 10 MG
     Route: 048

REACTIONS (4)
  - Gastrointestinal haemorrhage [Unknown]
  - Haemorrhagic anaemia [Not Recovered/Not Resolved]
  - Dehydration [Unknown]
  - Renal failure acute [Not Recovered/Not Resolved]
